FAERS Safety Report 5429375-1 (Version None)
Quarter: 2007Q3

REPORT INFORMATION
  Report Type: 
  Country: None (occurrence: None)
  Receive Date: 20070829
  Receipt Date: 20070816
  Transmission Date: 20080115
  Serious: No
  Sender: FDA-Public Use
  Company Number: US-JNJFOC-20070704969

PATIENT
  Sex: Male

DRUGS (4)
  1. INVEGA [Suspect]
  2. INVEGA [Suspect]
     Indication: SCHIZOPHRENIA
  3. TEGRETOL [Interacting]
     Indication: EPILEPSY
  4. TRILEPTAL [Concomitant]
     Indication: EPILEPSY

REACTIONS (5)
  - APATHY [None]
  - BOREDOM [None]
  - DRUG INTERACTION [None]
  - HALLUCINATION [None]
  - SEXUAL DYSFUNCTION [None]
